APPROVED DRUG PRODUCT: GYNE-LOTRIMIN COMBINATION PACK
Active Ingredient: CLOTRIMAZOLE
Strength: 1%,100MG
Dosage Form/Route: CREAM, TABLET;TOPICAL, VAGINAL
Application: N020289 | Product #002
Applicant: BAYER HEALTHCARE LLC
Approved: Apr 26, 1993 | RLD: Yes | RS: No | Type: DISCN